FAERS Safety Report 5268610-X (Version None)
Quarter: 2007Q1

REPORT INFORMATION
  Report Type: 
  Country: None (occurrence: None)
  Receive Date: 20070313
  Receipt Date: 20070226
  Transmission Date: 20070707
  Serious: Yes (Hospitalization)
  Sender: FDA-Public Use
  Company Number: SPV1-2007-00912

PATIENT
  Age: 24 Year
  Sex: Male

DRUGS (1)
  1. ADDERALL XR(AMPHETAMINE ASPARTATE, DEXTROAMPHETAMINE SACCHARATE, DEXTR [Suspect]
     Dosage: APPROX. 0.25 GRAMS, ORAL
     Route: 048

REACTIONS (15)
  - ACUTE MYOCARDIAL INFARCTION [None]
  - ANXIETY [None]
  - ARTERIOSPASM CORONARY [None]
  - ATRIAL FIBRILLATION [None]
  - CARDIOMEGALY [None]
  - DRUG ABUSER [None]
  - DYSPNOEA [None]
  - HEART RATE IRREGULAR [None]
  - INTENTIONAL OVERDOSE [None]
  - NAUSEA [None]
  - OXYGEN SATURATION DECREASED [None]
  - PALPITATIONS [None]
  - PULMONARY CONGESTION [None]
  - TREMOR [None]
  - VOMITING [None]
